FAERS Safety Report 8308207-8 (Version None)
Quarter: 2012Q2

REPORT INFORMATION
  Report Type: 
  Country: None (occurrence: None)
  Receive Date: 20120424
  Receipt Date: 20120418
  Transmission Date: 20120825
  Serious: Yes (Death)
  Sender: FDA-Public Use
  Company Number: US-ROCHE-1059642

PATIENT
  Sex: Female

DRUGS (6)
  1. CELEXA [Concomitant]
     Indication: DEPRESSION
     Route: 048
  2. DEXAMETHASONE [Concomitant]
     Route: 048
  3. AMBIEN [Concomitant]
  4. ZELBORAF [Suspect]
     Indication: MALIGNANT MELANOMA
     Route: 048
     Dates: start: 20111228, end: 20120201
  5. POTASSIUM CHLORIDE [Concomitant]
  6. DIFLUCAN [Concomitant]

REACTIONS (2)
  - RASH [None]
  - METASTATIC MALIGNANT MELANOMA [None]
